FAERS Safety Report 25839020 (Version 1)
Quarter: 2025Q3

REPORT INFORMATION
  Report Type: Spontaneous
  Country: US (occurrence: US)
  Receive Date: 20250924
  Receipt Date: 20250924
  Transmission Date: 20251020
  Serious: Yes (Other)
  Sender: UCB
  Company Number: US-UCBSA-2025053400

PATIENT
  Age: 37 Year
  Sex: Male

DRUGS (2)
  1. BIMZELX [Suspect]
     Active Substance: BIMEKIZUMAB-BKZX
     Indication: Psoriatic arthropathy
     Dosage: 320 MILLIGRAM, EV 4 WEEKS
     Route: 058
     Dates: start: 20250619
  2. LODIPINE [LACIDIPINE] [Concomitant]
     Indication: Hypertension
     Route: 048

REACTIONS (6)
  - Psoriatic arthropathy [Recovered/Resolved]
  - Inappropriate schedule of product administration [Unknown]
  - Device issue [Unknown]
  - Device leakage [Unknown]
  - Off label use [Unknown]
  - Product distribution issue [Unknown]

NARRATIVE: CASE EVENT DATE: 20250619
